FAERS Safety Report 8771554 (Version 4)
Quarter: 2012Q4

REPORT INFORMATION
  Report Type: 
  Country: US (occurrence: US)
  Receive Date: 20120906
  Receipt Date: 20121126
  Transmission Date: 20130627
  Serious: No
  Sender: FDA-Public Use
  Company Number: US-VERTEX PHARMACEUTICAL INC.-2012-020224

PATIENT
  Age: 52 None
  Sex: Female
  Weight: 83 kg

DRUGS (3)
  1. VX-950 (TELAPREVIR) [Suspect]
     Indication: HEPATITIS C
     Dosage: 750 mg, UNK
     Route: 048
     Dates: start: 20120816
  2. RIBASPHERE [Concomitant]
     Indication: HEPATITIS C
     Dosage: 600 mg, bid
     Route: 048
     Dates: start: 20120816
  3. PEGASYS [Concomitant]
     Indication: HEPATITIS C
     Dosage: 180 ?g, weekly
     Route: 058
     Dates: start: 20120816

REACTIONS (12)
  - Dyspnoea [Unknown]
  - Depressed mood [Unknown]
  - Musculoskeletal pain [Unknown]
  - Headache [Unknown]
  - Abdominal pain [Unknown]
  - Skin disorder [Unknown]
  - Glossodynia [Unknown]
  - Fatigue [Unknown]
  - Rash generalised [Unknown]
  - Vomiting [Unknown]
  - Nausea [Unknown]
  - Pruritus generalised [Unknown]
